FAERS Safety Report 9325946 (Version 1)
Quarter: 2013Q2

REPORT INFORMATION
  Report Type: Spontaneous
  Country: US (occurrence: US)
  Receive Date: 20130604
  Receipt Date: 20130604
  Transmission Date: 20140414
  Serious: Yes (Other)
  Sender: FDA-Public Use
  Company Number: US-PFIZER INC-2013166079

PATIENT
  Age: 63 Year
  Sex: Female
  Weight: 88.44 kg

DRUGS (7)
  1. CALAN SR [Suspect]
     Indication: HYPERTENSION
     Dosage: UNK
  2. CALAN SR [Suspect]
     Indication: POST PROCEDURAL STROKE
  3. NEURONTIN [Suspect]
     Indication: POST PROCEDURAL STROKE
     Dosage: 300 MG, 3X/DAY
  4. NEURONTIN [Suspect]
     Dosage: 300 MG, 1X/DAY
  5. TOPROL XL [Concomitant]
     Indication: HYPERTENSION
     Dosage: 100 MG, 1X/DAY
  6. BENICAR HCT [Concomitant]
     Indication: HYPERTENSION
     Dosage: 12.5/40 MG, 1X/DAY
  7. LOVASTATIN [Concomitant]
     Indication: BLOOD CHOLESTEROL INCREASED
     Dosage: 40 MG, 1X/DAY

REACTIONS (2)
  - Bladder disorder [Unknown]
  - Therapy change [Unknown]
